FAERS Safety Report 6196867-X (Version None)
Quarter: 2009Q2

REPORT INFORMATION
  Report Type: 
  Country: None (occurrence: None)
  Receive Date: 20090518
  Receipt Date: 20090504
  Transmission Date: 20091009
  Serious: Yes (Death, Other)
  Sender: FDA-Public Use
  Company Number: 090508-0000698

PATIENT
  Age: 16 Year
  Sex: Female

DRUGS (3)
  1. COSMEGEN [Suspect]
     Indication: NEPHROBLASTOMA
  2. VINCRISTINE [Suspect]
     Indication: NEPHROBLASTOMA
  3. CYCLOPHOSPHAMIDE [Suspect]
     Indication: NEPHROBLASTOMA

REACTIONS (3)
  - LEUKOPENIA [None]
  - MALIGNANT NEOPLASM PROGRESSION [None]
  - NEPHROBLASTOMA [None]
